FAERS Safety Report 19718878 (Version 2)
Quarter: 2021Q4

REPORT INFORMATION
  Report Type: Report from Study
  Country: US (occurrence: US)
  Receive Date: 20210818
  Receipt Date: 20211005
  Transmission Date: 20220303
  Serious: Yes (Other)
  Sender: FDA-Public Use
  Company Number: NVSC2021US183925

PATIENT
  Sex: Male

DRUGS (1)
  1. ENTRESTO [Suspect]
     Active Substance: SACUBITRIL\VALSARTAN
     Indication: Cardiomyopathy
     Dosage: 1 DF (24/26 MG), BID
     Route: 065

REACTIONS (3)
  - Cardiomyopathy [Unknown]
  - Weight decreased [Unknown]
  - Product use in unapproved indication [Unknown]
